FAERS Safety Report 5878610-4 (Version None)
Quarter: 2008Q3

REPORT INFORMATION
  Report Type: 
  Country: None (occurrence: None)
  Receive Date: 20080909
  Receipt Date: 20080826
  Transmission Date: 20090109
  Serious: Yes (Death, Life-Threatening)
  Sender: FDA-Public Use
  Company Number: 004170

PATIENT
  Age: 43 Year
  Sex: Male

DRUGS (6)
  1. BUSULFEX [Suspect]
     Indication: STEM CELL TRANSPLANT
     Dosage: 36 ML, INTRAVENOUS
     Route: 042
     Dates: start: 20070322, end: 20070325
  2. LENOGRASTIM (LENOGRASTIM) [Concomitant]
  3. FILGRASTIM (FILGRASTIM) [Concomitant]
  4. FLUDARABINE PHOSPHATE [Concomitant]
  5. VALPROATE SODIUM [Concomitant]
  6. TACROLIMUS [Concomitant]

REACTIONS (13)
  - ACUTE GRAFT VERSUS HOST DISEASE [None]
  - ACUTE MYELOID LEUKAEMIA RECURRENT [None]
  - ANOREXIA [None]
  - CORD BLOOD TRANSPLANT THERAPY [None]
  - DIARRHOEA [None]
  - HAEMODIALYSIS [None]
  - HEPATIC FUNCTION ABNORMAL [None]
  - MALAISE [None]
  - MENINGITIS VIRAL [None]
  - NAUSEA [None]
  - RENAL IMPAIRMENT [None]
  - SEPSIS [None]
  - STOMATITIS [None]
